FAERS Safety Report 17803539 (Version 1)
Quarter: 2020Q2

REPORT INFORMATION
  Report Type: Spontaneous
  Country: DK (occurrence: DK)
  Receive Date: 20200519
  Receipt Date: 20200519
  Transmission Date: 20200714
  Serious: Yes (Other)
  Sender: FDA-Public Use
  Company Number: DK-PFIZER INC-2020191354

PATIENT
  Age: 82 Year
  Sex: Female

DRUGS (32)
  1. EPIRUBICIN HCL [Suspect]
     Active Substance: EPIRUBICIN HYDROCHLORIDE
     Indication: INVASIVE DUCTAL BREAST CARCINOMA
     Dosage: 160 MG, SINGLE
     Route: 042
     Dates: start: 20180629, end: 20180629
  2. TRASTUZUMAB. [Suspect]
     Active Substance: TRASTUZUMAB
     Dosage: 420 MG
     Route: 042
  3. TRASTUZUMAB. [Suspect]
     Active Substance: TRASTUZUMAB
     Dosage: 420 MG
     Route: 042
  4. PACLITAXEL. [Suspect]
     Active Substance: PACLITAXEL
     Dosage: DOSE:108-138 MG
     Route: 042
     Dates: start: 20180831, end: 20180831
  5. PACLITAXEL. [Suspect]
     Active Substance: PACLITAXEL
     Dosage: DOSE:108-138 MG
     Route: 042
  6. PERTUZUMAB. [Suspect]
     Active Substance: PERTUZUMAB
     Dosage: 420 MG
     Route: 042
     Dates: start: 20181011, end: 20181011
  7. EPIRUBICIN HCL [Suspect]
     Active Substance: EPIRUBICIN HYDROCHLORIDE
     Dosage: 160 MG, SINGLE
     Route: 042
     Dates: start: 20180810, end: 20180810
  8. TRASTUZUMAB. [Suspect]
     Active Substance: TRASTUZUMAB
     Dosage: 420 MG
     Route: 042
  9. TRASTUZUMAB. [Suspect]
     Active Substance: TRASTUZUMAB
     Dosage: 420 MG
     Route: 042
  10. SENDOXAN [Suspect]
     Active Substance: CYCLOPHOSPHAMIDE
     Indication: INVASIVE DUCTAL BREAST CARCINOMA
     Dosage: 1100 MG, SINGLE
     Route: 042
     Dates: start: 20180629, end: 20180629
  11. SENDOXAN [Suspect]
     Active Substance: CYCLOPHOSPHAMIDE
     Dosage: 1100 MG, SINGLE
     Route: 042
     Dates: start: 20180810, end: 20180810
  12. PACLITAXEL. [Suspect]
     Active Substance: PACLITAXEL
     Dosage: DOSE:108-138 MG
     Route: 042
  13. PERTUZUMAB. [Suspect]
     Active Substance: PERTUZUMAB
     Dosage: 420 MG
     Route: 042
     Dates: start: 20180921, end: 20180921
  14. HERCEPTIN [Suspect]
     Active Substance: TRASTUZUMAB
     Indication: INVASIVE DUCTAL BREAST CARCINOMA
     Dosage: 600MG/5 ML
     Route: 058
     Dates: start: 20180831, end: 20180831
  15. HERCEPTIN [Suspect]
     Active Substance: TRASTUZUMAB
     Dosage: 600MG/5 ML
     Route: 058
     Dates: start: 20180921, end: 20180921
  16. ZOLEDRONIC ACID [Suspect]
     Active Substance: ZOLEDRONIC ACID
     Indication: INVASIVE DUCTAL BREAST CARCINOMA
     Dosage: 1 DF, EVERY 6 MONTHS (THE ADMINISTRATION 06MAY2019 WAS NOT GIVEN DUE TO DENTAL ISSUES)
     Route: 042
     Dates: start: 201811
  17. TRASTUZUMAB. [Suspect]
     Active Substance: TRASTUZUMAB
     Dosage: 420 MG
     Route: 042
  18. SENDOXAN [Suspect]
     Active Substance: CYCLOPHOSPHAMIDE
     Dosage: 1100 MG, SINGLE
     Route: 042
     Dates: start: 20180720, end: 20180720
  19. EPIRUBICIN HCL [Suspect]
     Active Substance: EPIRUBICIN HYDROCHLORIDE
     Dosage: 160 MG, SINGLE
     Route: 042
     Dates: start: 20180720, end: 20180720
  20. TRASTUZUMAB. [Suspect]
     Active Substance: TRASTUZUMAB
     Indication: INVASIVE DUCTAL BREAST CARCINOMA
     Dosage: 420 MG
     Route: 042
     Dates: start: 20181011, end: 20181011
  21. TRASTUZUMAB. [Suspect]
     Active Substance: TRASTUZUMAB
     Dosage: 420 MG
     Route: 042
  22. TRASTUZUMAB. [Suspect]
     Active Substance: TRASTUZUMAB
     Dosage: 420 MG
     Route: 042
  23. PACLITAXEL. [Suspect]
     Active Substance: PACLITAXEL
     Indication: INVASIVE DUCTAL BREAST CARCINOMA
     Dosage: DOSE:108-138 MG, 7 TIMES
     Route: 042
     Dates: start: 20180831, end: 20180831
  24. PERTUZUMAB. [Suspect]
     Active Substance: PERTUZUMAB
     Indication: INVASIVE DUCTAL BREAST CARCINOMA
     Dosage: 840 MG
     Route: 042
     Dates: start: 20180831, end: 20180831
  25. TRASTUZUMAB. [Suspect]
     Active Substance: TRASTUZUMAB
     Dosage: 420 MG
     Route: 042
  26. PACLITAXEL. [Suspect]
     Active Substance: PACLITAXEL
     Dosage: DOSE:108-138 MG
     Route: 042
  27. PACLITAXEL. [Suspect]
     Active Substance: PACLITAXEL
     Dosage: DOSE:108-138 MG
     Route: 042
     Dates: start: 20181025, end: 20181025
  28. TRASTUZUMAB. [Suspect]
     Active Substance: TRASTUZUMAB
     Dosage: 420 MG
     Route: 042
  29. TRASTUZUMAB. [Suspect]
     Active Substance: TRASTUZUMAB
     Dosage: 420 MG
     Route: 042
  30. TRASTUZUMAB. [Suspect]
     Active Substance: TRASTUZUMAB
     Dosage: 420 MG
     Route: 042
     Dates: start: 20190806, end: 20190806
  31. TRASTUZUMAB. [Suspect]
     Active Substance: TRASTUZUMAB
     Dosage: 420 MG
     Route: 042
  32. PACLITAXEL. [Suspect]
     Active Substance: PACLITAXEL
     Dosage: DOSE:108-138 MG
     Route: 042

REACTIONS (1)
  - Osteitis [Recovered/Resolved]
